FAERS Safety Report 15344987 (Version 1)
Quarter: 2018Q3

REPORT INFORMATION
  Report Type: Spontaneous
  Country: GB (occurrence: GB)
  Receive Date: 20180903
  Receipt Date: 20180903
  Transmission Date: 20181010
  Serious: Yes (Other)
  Sender: FDA-Public Use
  Company Number: GB-009507513-1808GBR013645

PATIENT
  Age: 48 Year
  Sex: Male
  Weight: 101 kg

DRUGS (16)
  1. APIDRA [Concomitant]
     Active Substance: INSULIN GLULISINE
     Dosage: AS DIRECTED BY DIABETIC CLINIC.
     Dates: start: 20170802
  2. CANDESARTAN. [Concomitant]
     Active Substance: CANDESARTAN
     Dosage: 1 DF, QD
     Dates: start: 20170802
  3. CICLESONIDE [Concomitant]
     Active Substance: CICLESONIDE
     Dosage: PUFFS.
     Dates: start: 20170804
  4. ATORVASTATIN [Concomitant]
     Active Substance: ATORVASTATIN
     Dosage: 1 DF, QD
     Dates: start: 20170802
  5. CLARITHROMYCIN. [Concomitant]
     Active Substance: CLARITHROMYCIN
     Dosage: 2 DF, QD
     Dates: start: 20180706
  6. VENTOLIN [Concomitant]
     Active Substance: ALBUTEROL SULFATE
     Dosage: PUFFS. FOUR TIMES A DAY. ; AS NECESSARY
     Dates: start: 20170802
  7. SILDENAFIL CITRATE. [Concomitant]
     Active Substance: SILDENAFIL CITRATE
     Dosage: 100 MG, UNK
     Dates: start: 20170516
  8. ESCITALOPRAM [Concomitant]
     Active Substance: ESCITALOPRAM OXALATE
     Dosage: USE AS DIRECTED.
     Dates: start: 20180321
  9. METFORMIN [Concomitant]
     Active Substance: METFORMIN HYDROCHLORIDE
     Dosage: 3 DF, QD
     Dates: start: 20170802
  10. SITAGLIPTIN PHOSPHATE [Suspect]
     Active Substance: SITAGLIPTIN PHOSPHATE
     Dosage: 25 MG, UNK
     Dates: start: 20180814
  11. LEVEMIR [Concomitant]
     Active Substance: INSULIN DETEMIR
     Dosage: ACCORDING TO REQUIREMENTS.
     Route: 058
     Dates: start: 20170802
  12. ASPIRIN. [Concomitant]
     Active Substance: ASPIRIN
     Dates: start: 20170802
  13. AMITRIPTYLINE HYDROCHLORIDE. [Concomitant]
     Active Substance: AMITRIPTYLINE HYDROCHLORIDE
     Dosage: AT NIGHT.
     Dates: start: 20170802
  14. NYSTAN [Concomitant]
     Active Substance: NYSTATIN
     Dosage: 2 ?3 DROPS FOUR TIMES A DAY.
     Dates: start: 20180809
  15. DALACIN [Concomitant]
     Active Substance: CLINDAMYCIN
     Dosage: 2 DF, QD
     Dates: start: 20180706
  16. FLIXONASE [Concomitant]
     Active Substance: FLUTICASONE PROPIONATE
     Dosage: 1 DF, QD, PUFF
     Dates: start: 20170802

REACTIONS (2)
  - Hypotension [Not Recovered/Not Resolved]
  - Balance disorder [Not Recovered/Not Resolved]

NARRATIVE: CASE EVENT DATE: 20180814
